FAERS Safety Report 6670737-2 (Version None)
Quarter: 2010Q2

REPORT INFORMATION
  Report Type: 
  Country: None (occurrence: None)
  Receive Date: 20100406
  Receipt Date: 20100406
  Transmission Date: 20101027
  Serious: Yes (Other)
  Sender: FDA-Public Use
  Company Number: None

PATIENT
  Sex: Female
  Weight: 68.0396 kg

DRUGS (1)
  1. MONISTAT [Suspect]
     Indication: FUNGAL INFECTION
     Dosage: 1 INSERTION 1X VAG; ENTIRE TIME IT'S INSIDE
     Route: 067
     Dates: start: 20100404, end: 20100405

REACTIONS (4)
  - CAUSTIC INJURY [None]
  - NONSPECIFIC REACTION [None]
  - POOR QUALITY SLEEP [None]
  - VULVOVAGINAL BURNING SENSATION [None]
